FAERS Safety Report 24576266 (Version 1)
Quarter: 2024Q4

REPORT INFORMATION
  Report Type: Spontaneous
  Country: US (occurrence: None)
  Receive Date: 20241104
  Receipt Date: 20241104
  Transmission Date: 20250115
  Serious: Yes (Hospitalization)
  Sender: Public
  Company Number: None

PATIENT
  Sex: Male

DRUGS (10)
  1. PULMOZYME [Suspect]
     Active Substance: DORNASE ALFA
     Indication: Cystic fibrosis
     Dosage: FREQ: INHALE CONTENTS OF 1 VIAL VIA NEBULIZER ONCE A DAY?
     Route: 055
     Dates: start: 20150414
  2. ALBUTEROAL SULFATE [Concomitant]
  3. ALPHAGAN P [Concomitant]
     Active Substance: BRIMONIDINE TARTRATE
  4. ARIPIPRAZOLE [Concomitant]
     Active Substance: ARIPIPRAZOLE
  5. CHLORHEX GLU SOL [Concomitant]
  6. DEPAKOTE [Concomitant]
     Active Substance: DIVALPROEX SODIUM
  7. FLUTICASONE [Concomitant]
     Active Substance: FLUTICASONE
  8. METHOCARBAMOL [Concomitant]
     Active Substance: METHOCARBAMOL
  9. MIRTAZAPINE [Concomitant]
     Active Substance: MIRTAZAPINE
  10. OXCARBAZEPINE [Concomitant]
     Active Substance: OXCARBAZEPINE

REACTIONS (3)
  - Autism spectrum disorder [None]
  - Loss of personal independence in daily activities [None]
  - Social avoidant behaviour [None]
